FAERS Safety Report 19124829 (Version 1)
Quarter: 2021Q2

REPORT INFORMATION
  Report Type: Other
  Country: SE (occurrence: SE)
  Receive Date: 20210413
  Receipt Date: 20210413
  Transmission Date: 20210717
  Serious: Yes (Hospitalization)
  Sender: FDA-Public Use
  Company Number: SE-SUN PHARMACEUTICAL INDUSTRIES LTD-2021R1-290618

PATIENT
  Age: 26 Year
  Sex: Male

DRUGS (3)
  1. ZOPICLONE [Suspect]
     Active Substance: ZOPICLONE
     Indication: PRODUCT USED FOR UNKNOWN INDICATION
     Route: 065
  2. METHYLPHENIDATE. [Suspect]
     Active Substance: METHYLPHENIDATE
     Indication: PRODUCT USED FOR UNKNOWN INDICATION
     Dosage: UNK
     Route: 065
  3. DIAZEPAM. [Suspect]
     Active Substance: DIAZEPAM
     Indication: PRODUCT USED FOR UNKNOWN INDICATION
     Route: 065

REACTIONS (4)
  - C-reactive protein increased [Unknown]
  - Infection [Unknown]
  - Pyrexia [Unknown]
  - Off label use [Unknown]
